FAERS Safety Report 23167006 (Version 1)
Quarter: 2023Q4

REPORT INFORMATION
  Report Type: Spontaneous
  Country: GB (occurrence: GB)
  Receive Date: 20231109
  Receipt Date: 20231109
  Transmission Date: 20240109
  Serious: Yes (Death)
  Sender: FDA-Public Use
  Company Number: GB-PFIZER INC-17549

PATIENT
  Age: 36 Year
  Sex: Male

DRUGS (3)
  1. OXALIPLATIN [Suspect]
     Active Substance: OXALIPLATIN
     Indication: Colorectal cancer metastatic
     Dosage: 250 MG, UNK
     Route: 042
     Dates: start: 20070806
  2. PAZOPANIB [Suspect]
     Active Substance: PAZOPANIB
     Indication: Colorectal cancer metastatic
     Dosage: 800 MG, UNK
     Route: 048
     Dates: start: 20070806, end: 20070814
  3. XELODA [Suspect]
     Active Substance: CAPECITABINE
     Indication: Colorectal cancer metastatic
     Dosage: 1900 MG, 2X/DAY
     Route: 048
     Dates: start: 20070806, end: 20070814

REACTIONS (1)
  - Cardiac arrest [Fatal]

NARRATIVE: CASE EVENT DATE: 20070815
